FAERS Safety Report 4872420-2 (Version None)
Quarter: 2006Q1

REPORT INFORMATION
  Report Type: 
  Country: None (occurrence: None)
  Receive Date: 20060104
  Receipt Date: 20051005
  Transmission Date: 20060701
  Serious: Yes (Other)
  Sender: FDA-Public Use
  Company Number: CA-MERCK-0510CAN00088

PATIENT
  Age: 34 Year
  Sex: Female

DRUGS (3)
  1. VIOXX [Suspect]
     Indication: PAIN
     Route: 048
     Dates: start: 20010901, end: 20050101
  2. [THERAPY UNSPECIFIED] [Concomitant]
     Indication: HORMONE REPLACEMENT THERAPY
     Route: 065
  3. [THERAPY UNSPECIFIED] [Concomitant]
     Route: 065

REACTIONS (6)
  - BACK INJURY [None]
  - CEREBROVASCULAR ACCIDENT [None]
  - FALL [None]
  - MULTIPLE SCLEROSIS [None]
  - MUSCULOSKELETAL STIFFNESS [None]
  - OVERDOSE [None]
